FAERS Safety Report 24462471 (Version 1)
Quarter: 2024Q4

REPORT INFORMATION
  Report Type: Report from Study
  Country: IT (occurrence: IT)
  Receive Date: 20241018
  Receipt Date: 20241018
  Transmission Date: 20250115
  Serious: Yes (Life-Threatening, Other)
  Sender: AUROBINDO
  Company Number: IT-AUROBINDO-AUR-APL-2024-049902

PATIENT
  Age: 4 Year
  Sex: Female
  Weight: 18 kg

DRUGS (6)
  1. MELPHALAN [Suspect]
     Active Substance: MELPHALAN
     Indication: Neuroblastoma
     Dosage: 110 MG/M2 SINGLE DOSE
     Route: 065
  2. IOBENGUANE I-131 [Suspect]
     Active Substance: IOBENGUANE I-131
     Indication: Neuroblastoma
     Dosage: TWO INFUSIONS, ADMINISTERED 2 WEEKS APART
     Route: 042
  3. IOBENGUANE I-131 [Suspect]
     Active Substance: IOBENGUANE I-131
     Dosage: 444 MBQ/KG
     Route: 042
  4. LUGOL [Concomitant]
     Active Substance: IODINE\POTASSIUM IODIDE
     Indication: Prophylaxis
     Dosage: UNK
     Route: 065
  5. LIOTHYRONINE SODIUM [Concomitant]
     Active Substance: LIOTHYRONINE SODIUM
     Indication: Prophylaxis
     Dosage: UNK
     Route: 065
  6. ONDANSETRON [Concomitant]
     Active Substance: ONDANSETRON
     Indication: Antiemetic supportive care
     Dosage: UNK
     Route: 065

REACTIONS (3)
  - Neutropenia [Unknown]
  - Mucosal inflammation [Unknown]
  - Pyrexia [Unknown]
